FAERS Safety Report 12564406 (Version 1)
Quarter: 2016Q3

REPORT INFORMATION
  Report Type: Report from Study
  Country: BR (occurrence: BR)
  Receive Date: 20160718
  Receipt Date: 20160718
  Transmission Date: 20161109
  Serious: Yes (Other)
  Sender: FDA-Public Use
  Company Number: BR-ROCHE-1707491

PATIENT
  Age: 62 Year
  Sex: Female
  Weight: 75 kg

DRUGS (7)
  1. MABTHERA [Suspect]
     Active Substance: RITUXIMAB
     Route: 042
     Dates: start: 2015
  2. MABTHERA [Suspect]
     Active Substance: RITUXIMAB
     Indication: RHEUMATOID ARTHRITIS
     Dosage: (DAY 1)
     Route: 042
     Dates: start: 20160205, end: 20160205
  3. MABTHERA [Suspect]
     Active Substance: RITUXIMAB
     Dosage: DATE OF RECENT RITUXIMAB INFUSION: 20/FEB/2016
     Route: 042
     Dates: start: 20150516
  4. POLARAMINE [Concomitant]
     Active Substance: DEXCHLORPHENIRAMINE MALEATE
     Indication: PREMEDICATION
     Route: 065
  5. PARACETAMOL [Concomitant]
     Active Substance: ACETAMINOPHEN
     Indication: PREMEDICATION
     Route: 065
  6. LEFLUNOMIDE. [Concomitant]
     Active Substance: LEFLUNOMIDE
     Indication: ARTHRITIS
     Dosage: 1 TABLET
     Route: 065
  7. METHOTREXATE. [Concomitant]
     Active Substance: METHOTREXATE
     Indication: ARTHRITIS
     Route: 065

REACTIONS (14)
  - Pain [Unknown]
  - Laceration [Unknown]
  - Mucosal inflammation [Unknown]
  - Gastrointestinal inflammation [Unknown]
  - Throat irritation [Recovered/Resolved]
  - Hypersensitivity [Unknown]
  - Laryngeal oedema [Unknown]
  - Mucosal infection [Unknown]
  - Diarrhoea [Unknown]
  - Rhinitis [Unknown]
  - Ear pruritus [Recovered/Resolved]
  - Cough [Unknown]
  - Infection [Unknown]
  - Pruritus generalised [Unknown]

NARRATIVE: CASE EVENT DATE: 20160205
